FAERS Safety Report 19954886 (Version 1)
Quarter: 2021Q4

REPORT INFORMATION
  Report Type: Spontaneous
  Country: CN (occurrence: CN)
  Receive Date: 20211014
  Receipt Date: 20211014
  Transmission Date: 20220303
  Serious: Yes (Hospitalization, Other)
  Sender: FDA-Public Use
  Company Number: CN-LUPIN PHARMACEUTICALS INC.-2021-19567

PATIENT

DRUGS (6)
  1. LINEZOLID [Suspect]
     Active Substance: LINEZOLID
     Indication: Congenital tuberculosis
     Dosage: 10 MILLIGRAM/KILOGRAM,UNK,ADMINISTERED TWICE DAILY AT 12 HOUR INTERVALS OR THREE TIMES DAILY AT 8-HO
     Route: 065
  2. PYRAZINAMIDE [Suspect]
     Active Substance: PYRAZINAMIDE
     Indication: Congenital tuberculosis
     Dosage: UNK,ADMINISTERED FOR 2 MONTHS.
     Route: 065
  3. RIFAMPIN [Suspect]
     Active Substance: RIFAMPIN
     Indication: Congenital tuberculosis
     Dosage: UNK,ADMINISTERED FOR 2 MONTHS.
     Route: 065
  4. ISONIAZID [Suspect]
     Active Substance: ISONIAZID
     Indication: Congenital tuberculosis
     Dosage: UNK,ADMINISTERED FOR 2 MONTHS.
     Route: 065
  5. GLUTATHIONE [Concomitant]
     Active Substance: GLUTATHIONE
     Indication: Product used for unknown indication
     Dosage: UNK
     Route: 065
  6. ORNITHINE [Concomitant]
     Active Substance: ORNITHINE
     Indication: Product used for unknown indication
     Route: 065

REACTIONS (1)
  - Drug-induced liver injury [Recovered/Resolved]
